FAERS Safety Report 16903562 (Version 2)
Quarter: 2019Q4

REPORT INFORMATION
  Report Type: Spontaneous
  Country: US (occurrence: US)
  Receive Date: 20191010
  Receipt Date: 20191016
  Transmission Date: 20200122
  Serious: Yes (Congenital Anomaly, Other)
  Sender: FDA-Public Use
  Company Number: US-PFIZER INC-2019430464

PATIENT
  Sex: Female

DRUGS (1)
  1. METHOTREXATE SODIUM. [Suspect]
     Active Substance: METHOTREXATE SODIUM
     Indication: ABORTION INDUCED
     Dosage: UNK
     Route: 064

REACTIONS (9)
  - Craniosynostosis [Unknown]
  - Congenital hand malformation [Unknown]
  - Syndactyly [Unknown]
  - Clinodactyly [Unknown]
  - Synostosis [Unknown]
  - Conductive deafness [Unknown]
  - Adactyly [Unknown]
  - Premature baby [Unknown]
  - Maternal exposure during pregnancy [Unknown]
